FAERS Safety Report 4708739-5 (Version None)
Quarter: 2005Q3

REPORT INFORMATION
  Report Type: 
  Country: None (occurrence: None)
  Receive Date: 20050707
  Receipt Date: 20050629
  Transmission Date: 20060218
  Serious: Yes (Other)
  Sender: FDA-Public Use
  Company Number: PT-BRISTOL-MYERS SQUIBB COMPANY-13027941

PATIENT

DRUGS (1)
  1. ERBITUX [Suspect]

REACTIONS (1)
  - MENINGITIS ASEPTIC [None]
